FAERS Safety Report 8378195 (Version 3)
Quarter: 2013Q1

REPORT INFORMATION
  Report Type: Spontaneous
  Country: US (occurrence: US)
  Receive Date: 20120131
  Receipt Date: 20130308
  Transmission Date: 20140127
  Serious: Yes (Hospitalization)
  Sender: FDA-Public Use
  Company Number: US-US-EMD SERONO, INC.-7108727

PATIENT
  Age: 37 Year
  Sex: Female
  Weight: 94 kg

DRUGS (6)
  1. REBIF [Suspect]
     Indication: MULTIPLE SCLEROSIS
     Route: 058
     Dates: start: 20101222, end: 20120106
  2. REBIF [Suspect]
     Route: 058
  3. TIZANIDINE [Concomitant]
     Indication: MUSCLE SPASMS
     Route: 048
  4. GABAPENTIN [Concomitant]
     Indication: PAIN
     Route: 048
  5. CYMBALTA [Concomitant]
     Indication: PAIN
     Route: 048
  6. VICODIN [Concomitant]
     Indication: PAIN IN EXTREMITY

REACTIONS (6)
  - Intervertebral disc protrusion [Recovered/Resolved with Sequelae]
  - Limb injury [Unknown]
  - Joint injury [Unknown]
  - Fall [Unknown]
  - Visual impairment [Not Recovered/Not Resolved]
  - Injection site haemorrhage [Recovered/Resolved]
